FAERS Safety Report 7902852 (Version 2)
Quarter: 2012Q4

REPORT INFORMATION
  Report Type: 
  Country: GB (occurrence: GB)
  Receive Date: 20110418
  Receipt Date: 20121207
  Transmission Date: 20130627
  Serious: Yes (Life-Threatening, Hospitalization, Other)
  Sender: FDA-Public Use
  Company Number: PHHY2011GB30084

PATIENT
  Age: 89 Year
  Sex: Male
  Weight: 46.2 kg

DRUGS (11)
  1. METHOTREXATE [Suspect]
     Indication: SERONEGATIVE ARTHRITIS
     Dosage: 10 mg, QW
     Route: 048
     Dates: end: 20110317
  2. ADCAL-D3 [Concomitant]
  3. ASASANTIN [Concomitant]
  4. COSOPT [Concomitant]
  5. FERROUS FUMARATE [Concomitant]
  6. FOLIC ACID [Concomitant]
  7. ISOSORBIDE MONONITRATE [Concomitant]
  8. METHOTREXATE [Concomitant]
     Indication: ARTHRITIS
  9. MOVICOL [Concomitant]
  10. RABEPRAZOLE [Concomitant]
  11. TRAMADOL HYDROCHLORIDE [Concomitant]

REACTIONS (18)
  - Fall [Recovered/Resolved]
  - Myelodysplastic syndrome [Unknown]
  - Bone marrow failure [Unknown]
  - Pancytopenia [Unknown]
  - White blood cell count decreased [Unknown]
  - Neutrophil count decreased [Unknown]
  - Malaise [Unknown]
  - Splenomegaly [Unknown]
  - Haemolysis [Unknown]
  - Syncope [Unknown]
  - Toxicity to various agents [Unknown]
  - Renal failure acute [Unknown]
  - Neutropenic sepsis [Recovering/Resolving]
  - Hypophagia [Recovered/Resolved]
  - Neoplasm malignant [Unknown]
  - Weight decreased [Recovered/Resolved]
  - Constipation [Recovered/Resolved]
  - Diarrhoea [Recovered/Resolved]
